FAERS Safety Report 4517064-7 (Version None)
Quarter: 2004Q4

REPORT INFORMATION
  Report Type: 
  Country: None (occurrence: None)
  Receive Date: 20041029
  Receipt Date: 20040930
  Transmission Date: 20050328
  Serious: No
  Sender: FDA-Public Use
  Company Number: 2004-120844-NL

PATIENT
  Age: 24 Year
  Sex: Female
  Weight: 88.6 kg

DRUGS (5)
  1. NUVARING [Suspect]
     Indication: CONTRACEPTION
     Dosage: DF DAILY VAGINAL
     Route: 067
     Dates: start: 20040701
  2. NUVARING [Suspect]
     Indication: MENSTRUATION IRREGULAR
     Dosage: DF DAILY VAGINAL
     Route: 067
     Dates: start: 20040701
  3. THYROID TAB [Concomitant]
  4. LEXAPRO [Concomitant]
  5. PAXIL [Concomitant]

REACTIONS (2)
  - VAGINAL CONTRACEPTIVE DEVICE EXPELLED [None]
  - VAGINAL MYCOSIS [None]
